FAERS Safety Report 26181594 (Version 1)
Quarter: 2025Q4

REPORT INFORMATION
  Report Type: Spontaneous
  Country: US (occurrence: US)
  Receive Date: 20251221
  Receipt Date: 20251221
  Transmission Date: 20260117
  Serious: No
  Sender: SHIONOGI
  Company Number: US-shionogi-202500013865

PATIENT
  Age: 14 Year
  Sex: Male

DRUGS (1)
  1. FETROJA [Suspect]
     Active Substance: CEFIDEROCOL SULFATE TOSYLATE
     Indication: Product used for unknown indication
     Dosage: RECEIVED UNREFRIGERATED FETROJA FOR 2-3 DOSES

REACTIONS (4)
  - Product storage error [Unknown]
  - Medication error [Unknown]
  - Off label use [Unknown]
  - No adverse event [Unknown]

NARRATIVE: CASE EVENT DATE: 20251213
